FAERS Safety Report 7009553-0 (Version None)
Quarter: 2010Q3

REPORT INFORMATION
  Report Type: 
  Country: None (occurrence: None)
  Receive Date: 20100923
  Receipt Date: 20100920
  Transmission Date: 20110219
  Serious: Yes (Death, Hospitalization, Other)
  Sender: FDA-Public Use
  Company Number: PHHY2010MX24416

PATIENT
  Sex: Female

DRUGS (3)
  1. STALEVO 100 [Suspect]
     Indication: PARKINSON'S DISEASE
     Dosage: 2 TABLETS PER DAY
     Route: 048
     Dates: start: 20060101
  2. TELMISARTAN [Concomitant]
     Indication: HYPERTENSION
     Dosage: ONE TABLET PER DAY
  3. TRAMADOL HCL [Concomitant]

REACTIONS (6)
  - FALL [None]
  - HIP FRACTURE [None]
  - HIP SURGERY [None]
  - RENAL DISORDER [None]
  - RENAL FAILURE [None]
  - RESPIRATORY ARREST [None]
